FAERS Safety Report 4736303-0 (Version None)
Quarter: 2005Q3

REPORT INFORMATION
  Report Type: 
  Country: None (occurrence: None)
  Receive Date: 20050802
  Receipt Date: 20050726
  Transmission Date: 20060218
  Serious: Yes (Other)
  Sender: FDA-Public Use
  Company Number: 2003032887

PATIENT
  Age: 69 Year
  Sex: Female
  Weight: 76.2043 kg

DRUGS (6)
  1. LIPITOR [Suspect]
     Indication: BLOOD CHOLESTEROL INCREASED
     Dosage: 10 MG (DAILY), ORAL
     Route: 048
     Dates: start: 20030515, end: 20030803
  2. PLAVIX [Concomitant]
  3. ACETYLSALICYLIC ACID SRT [Suspect]
  4. AMARYL [Concomitant]
  5. NORVASC [Concomitant]
  6. LABETALOL HCL [Concomitant]

REACTIONS (11)
  - ARTERIAL REPAIR [None]
  - ASTHENIA [None]
  - CONTUSION [None]
  - DECREASED ACTIVITY [None]
  - DYSSTASIA [None]
  - HYPOAESTHESIA [None]
  - MUSCLE SPASMS [None]
  - MUSCULAR WEAKNESS [None]
  - NERVOUS SYSTEM DISORDER [None]
  - THERAPY NON-RESPONDER [None]
  - URINARY TRACT INFECTION [None]
